FAERS Safety Report 5374739-8 (Version None)
Quarter: 2007Q2

REPORT INFORMATION
  Report Type: 
  Country: None (occurrence: None)
  Receive Date: 20070625
  Receipt Date: 20070503
  Transmission Date: 20071010
  Serious: Yes (Death)
  Sender: FDA-Public Use
  Company Number: 06P-163-0337981-00

PATIENT
  Age: 65 Year
  Sex: Female
  Weight: 74.3899 kg

DRUGS (4)
  1. HUMIRA [Suspect]
     Indication: RHEUMATOID ARTHRITIS
     Dosage: 40 MG, 1 IN 2 WK, SUBCUTANEOUS
     Route: 058
     Dates: start: 20040801, end: 20060201
  2. DICLOFENAC SODIUM [Concomitant]
  3. METHOTREXATE SODIUM [Concomitant]
  4. RISEDRONATE SODIUM [Concomitant]

REACTIONS (1)
  - DEATH [None]
